FAERS Safety Report 18768941 (Version 1)
Quarter: 2021Q1

REPORT INFORMATION
  Report Type: Spontaneous
  Country: CN (occurrence: CN)
  Receive Date: 20210121
  Receipt Date: 20210121
  Transmission Date: 20210419
  Serious: Yes (Other)
  Sender: FDA-Public Use
  Company Number: CN-ASTRAZENECA-2021A010401

PATIENT
  Sex: Female

DRUGS (1)
  1. OLAPARIB. [Suspect]
     Active Substance: OLAPARIB
     Dosage: UNKNOWN
     Route: 048

REACTIONS (4)
  - Platelet count decreased [Recovering/Resolving]
  - Carbohydrate antigen 125 increased [Unknown]
  - Cardiac ventricular thrombosis [Unknown]
  - Drug effect less than expected [Unknown]
